FAERS Safety Report 14911567 (Version 1)
Quarter: 2018Q2

REPORT INFORMATION
  Report Type: Spontaneous
  Country: FR (occurrence: FR)
  Receive Date: 20180518
  Receipt Date: 20180518
  Transmission Date: 20180711
  Serious: Yes (Other)
  Sender: FDA-Public Use
  Company Number: FR-MERCK KGAA-2048031

PATIENT
  Sex: Female

DRUGS (1)
  1. NOVOTHYROX [Suspect]
     Active Substance: LEVOTHYROXINE SODIUM
     Indication: PRODUCT USED FOR UNKNOWN INDICATION

REACTIONS (20)
  - Fatigue [None]
  - Condition aggravated [None]
  - Disturbance in social behaviour [None]
  - Affective disorder [None]
  - Decreased interest [None]
  - Muscle spasms [None]
  - Mental fatigue [None]
  - Depression [None]
  - Insomnia [None]
  - Initial insomnia [None]
  - Anxiety disorder [None]
  - Loss of personal independence in daily activities [None]
  - Phobic avoidance [None]
  - Arrhythmia [None]
  - Aggression [None]
  - Asthenia [None]
  - Vertigo [None]
  - Anxiety [None]
  - Sleep disorder [None]
  - Palpitations [None]
